FAERS Safety Report 7332402-8 (Version None)
Quarter: 2011Q1

REPORT INFORMATION
  Report Type: 
  Country: None (occurrence: None)
  Receive Date: 20110304
  Receipt Date: 20110222
  Transmission Date: 20110831
  Serious: Yes (Hospitalization)
  Sender: FDA-Public Use
  Company Number: B0703888A

PATIENT
  Sex: Female
  Weight: 65 kg

DRUGS (5)
  1. ZOFRAN [Concomitant]
     Indication: NAUSEA
     Dates: start: 20101101
  2. CODIDOL [Concomitant]
     Dosage: 60MG PER DAY
     Dates: start: 20101101
  3. LAPATINIB [Suspect]
     Dosage: 250MG PER DAY
     Route: 048
     Dates: start: 20110131
  4. LAEVOLAC [Concomitant]
     Dates: start: 20110101
  5. CAELYX [Suspect]
     Dosage: 70MG PER DAY
     Dates: start: 20110131

REACTIONS (2)
  - PYREXIA [None]
  - ABDOMINAL PAIN UPPER [None]
